FAERS Safety Report 10190083 (Version 1)
Quarter: 2014Q2

REPORT INFORMATION
  Report Type: Spontaneous
  Country: DE (occurrence: DE)
  Receive Date: 20140522
  Receipt Date: 20140522
  Transmission Date: 20141212
  Serious: Yes (Congenital Anomaly)
  Sender: FDA-Public Use
  Company Number: GXKR2014DE001952

PATIENT
  Sex: 0

DRUGS (4)
  1. PREDNISOLONE [Suspect]
     Indication: CROHN^S DISEASE
     Dosage: 40 [MG/D ]/ DOSAGE REDUCTION TO 5MG/D
     Route: 064
  2. DIOVAN [Suspect]
     Indication: HYPERTENSION
     Dosage: 120 [MG/D ]
     Route: 064
     Dates: start: 20100906
  3. HUMIRA [Suspect]
     Indication: CROHN^S DISEASE
     Dosage: 40 [MG/2 WK ]
     Route: 064
  4. FOLIO FORTE [Concomitant]
     Indication: PROPHYLAXIS OF NEURAL TUBE DEFECT
     Dosage: 0.8 [MG/D ]
     Route: 064
     Dates: start: 20100906, end: 20101214

REACTIONS (1)
  - Foetal cystic hygroma [Not Recovered/Not Resolved]
